FAERS Safety Report 6663273-0 (Version None)
Quarter: 2010Q2

REPORT INFORMATION
  Report Type: 
  Country: None (occurrence: None)
  Receive Date: 20100401
  Receipt Date: 20100324
  Transmission Date: 20101027
  Serious: Yes (Hospitalization)
  Sender: FDA-Public Use
  Company Number: US-ASTRAZENECA-2010SE12998

PATIENT
  Age: 23 Year
  Sex: Female

DRUGS (1)
  1. NEXIUM [Suspect]
     Dosage: BID
     Route: 048

REACTIONS (1)
  - OESOPHAGOGASTRIC FUNDOPLASTY [None]
